FAERS Safety Report 11537430 (Version 1)
Quarter: 2015Q3

REPORT INFORMATION
  Report Type: Spontaneous
  Country: US (occurrence: US)
  Receive Date: 20150922
  Receipt Date: 20150922
  Transmission Date: 20151125
  Serious: No
  Sender: FDA-Public Use
  Company Number: US-PFIZER INC-2015285414

PATIENT
  Age: 56 Year
  Sex: Male

DRUGS (1)
  1. CADUET [Suspect]
     Active Substance: AMLODIPINE BESYLATE\ATORVASTATIN CALCIUM
     Dosage: UNK, 1X/DAY(AMLODIPINE 10MG/ ATORVASTATIN 10 MG) (TAKE 1 TABLET(S) EVERY DAY BY ORAL ROUTE)
     Route: 048

REACTIONS (1)
  - Malaise [Unknown]
